FAERS Safety Report 19720573 (Version 2)
Quarter: 2021Q3

REPORT INFORMATION
  Report Type: Spontaneous
  Country: US (occurrence: US)
  Receive Date: 20210819
  Receipt Date: 20210913
  Transmission Date: 20211014
  Serious: Yes (Other)
  Sender: FDA-Public Use
  Company Number: US-SA-2021SA272087

PATIENT
  Age: 61 Year
  Sex: Female

DRUGS (1)
  1. ZANTAC [Suspect]
     Active Substance: RANITIDINE HYDROCHLORIDE
     Dosage: 75 MG, QD
     Dates: start: 199203, end: 201904

REACTIONS (6)
  - Renal cancer stage II [Unknown]
  - Pain [Unknown]
  - Anxiety [Unknown]
  - Deformity [Unknown]
  - Injury [Unknown]
  - Economic problem [Unknown]

NARRATIVE: CASE EVENT DATE: 201909
